FAERS Safety Report 13219385 (Version 1)
Quarter: 2017Q1

REPORT INFORMATION
  Report Type: Spontaneous
  Country: US (occurrence: US)
  Receive Date: 20170210
  Receipt Date: 20170210
  Transmission Date: 20170428
  Serious: Yes (Hospitalization)
  Sender: FDA-Public Use
  Company Number: US-ASTRAZENECA-2017SE13269

PATIENT
  Age: 636 Month
  Sex: Female
  Weight: 89.8 kg

DRUGS (7)
  1. BRILINTA [Suspect]
     Active Substance: TICAGRELOR
     Indication: CARDIAC DISORDER
     Dosage: TWO TIMES A DAY
     Route: 048
     Dates: start: 20170131
  2. BRILINTA [Suspect]
     Active Substance: TICAGRELOR
     Indication: CARDIAC DISORDER
     Dosage: TWO TIMES A DAY
     Route: 048
     Dates: start: 2015, end: 201607
  3. UNKNOWN NOT SPECIFIED [Concomitant]
     Indication: BLOOD CHOLESTEROL ABNORMAL
  4. BRILINTA [Suspect]
     Active Substance: TICAGRELOR
     Indication: BLOOD DISORDER
     Dosage: TWO TIMES A DAY
     Route: 048
     Dates: start: 20170131
  5. BRILINTA [Suspect]
     Active Substance: TICAGRELOR
     Indication: BLOOD DISORDER
     Dosage: TWO TIMES A DAY
     Route: 048
     Dates: start: 2015, end: 201607
  6. INSULIN [Concomitant]
     Active Substance: INSULIN NOS
  7. UNKNOWN NOT SPECIFIED [Concomitant]
     Indication: HYPERTENSION

REACTIONS (4)
  - Off label use [Unknown]
  - Chest pain [Recovered/Resolved]
  - Drug dose omission [Recovered/Resolved]
  - Product use issue [Unknown]

NARRATIVE: CASE EVENT DATE: 201607
